FAERS Safety Report 4310752-7 (Version None)
Quarter: 2004Q1

REPORT INFORMATION
  Report Type: 
  Country: None (occurrence: None)
  Receive Date: 20040303
  Receipt Date: 20040224
  Transmission Date: 20041129
  Serious: Yes (Hospitalization)
  Sender: FDA-Public Use
  Company Number: WAES 0402USA01733

PATIENT
  Age: 77 Year
  Sex: Female

DRUGS (1)
  1. STROMECTOL [Suspect]
     Route: 048
     Dates: start: 20031207, end: 20031207

REACTIONS (20)
  - ARRHYTHMIA [None]
  - ASTHENIA [None]
  - BLOOD PRESSURE INCREASED [None]
  - CHEST PAIN [None]
  - CHILLS [None]
  - CREPITATIONS [None]
  - DIARRHOEA [None]
  - DYSPNOEA [None]
  - HAEMOGLOBIN DECREASED [None]
  - HEPATOMEGALY [None]
  - MUSCLE DISORDER [None]
  - PALLOR [None]
  - PNEUMONIA [None]
  - PRODUCTIVE COUGH [None]
  - PYREXIA [None]
  - RALES [None]
  - SWELLING FACE [None]
  - TUBERCULOSIS [None]
  - VERTIGO [None]
  - VOMITING [None]
